FAERS Safety Report 15580030 (Version 2)
Quarter: 2018Q4

REPORT INFORMATION
  Report Type: Report from Study
  Country: US (occurrence: US)
  Receive Date: 20181102
  Receipt Date: 20181116
  Transmission Date: 20190205
  Serious: Yes (Hospitalization)
  Sender: FDA-Public Use
  Company Number: US-BAYER-2018-179876

PATIENT
  Age: 48 Year
  Sex: Female

DRUGS (2)
  1. STIVARGA [Suspect]
     Active Substance: REGORAFENIB
     Indication: COLORECTAL CANCER
     Dosage: 80 MG DAILY
     Route: 048
     Dates: start: 20181011
  2. STIVARGA [Suspect]
     Active Substance: REGORAFENIB
     Indication: COLORECTAL CANCER
     Dosage: TAKE 3 TABLETS BY MOUTH DAILY FOR 21 DAYS
     Route: 048
     Dates: start: 20180914

REACTIONS (11)
  - Pain [None]
  - Stomatitis [Not Recovered/Not Resolved]
  - Hyperkeratosis [None]
  - Skin fissures [None]
  - Candida infection [None]
  - Drug intolerance [None]
  - Palmar-plantar erythrodysaesthesia syndrome [Not Recovered/Not Resolved]
  - Skin ulcer [None]
  - Gait disturbance [None]
  - Rash [Not Recovered/Not Resolved]
  - Off label use [None]

NARRATIVE: CASE EVENT DATE: 201809
